FAERS Safety Report 6348105-2 (Version None)
Quarter: 2009Q3

REPORT INFORMATION
  Report Type: 
  Country: None (occurrence: None)
  Receive Date: 20090910
  Receipt Date: 20090902
  Transmission Date: 20100115
  Serious: Yes (Other)
  Sender: FDA-Public Use
  Company Number: US-JNJCH-2009023849

PATIENT
  Age: 21 Year
  Sex: Male
  Weight: 67.1 kg

DRUGS (1)
  1. LISTERINE WHITENING PRE-BRUSH RINSE [Suspect]
     Indication: DENTAL CARE
     Dosage: TEXT:15ML TWICE
     Route: 048
     Dates: start: 20090831, end: 20090902

REACTIONS (5)
  - APPLICATION SITE ERYTHEMA [None]
  - APPLICATION SITE VESICLES [None]
  - ERYTHEMA [None]
  - LIP SWELLING [None]
  - STOMATITIS [None]
